FAERS Safety Report 7275035-4 (Version None)
Quarter: 2011Q1

REPORT INFORMATION
  Report Type: 
  Country: None (occurrence: None)
  Receive Date: 20110131
  Receipt Date: 20110117
  Transmission Date: 20110831
  Serious: Yes (Other)
  Sender: FDA-Public Use
  Company Number: 2011SP002160

PATIENT
  Sex: Female

DRUGS (2)
  1. IMPLANON [Suspect]
     Indication: CONTRACEPTION
     Dates: start: 20080108, end: 20110107
  2. IMPLANON [Suspect]
     Indication: CONTRACEPTION
     Dates: end: 20080108

REACTIONS (2)
  - PREGNANCY ON CONTRACEPTIVE [None]
  - HAEMORRHAGE [None]
